FAERS Safety Report 4886518-6 (Version None)
Quarter: 2005Q4

REPORT INFORMATION
  Report Type: 
  Country: None (occurrence: None)
  Receive Date: 20051220
  Receipt Date: 20050104
  Transmission Date: 20060501
  Serious: Yes (Hospitalization)
  Sender: FDA-Public Use
  Company Number: HQWYE428707JAN05

PATIENT
  Sex: Female

DRUGS (3)
  1. EFFEXOR XR [Suspect]
     Indication: DEPRESSION
     Dosage: 150 MG 1 PER 1 DAY ; TAPERING OFF
     Dates: start: 20041001, end: 20050101
  2. EFFEXOR XR [Suspect]
     Indication: DEPRESSION
     Dosage: 150 MG 1 PER 1 DAY ; TAPERING OFF
     Dates: start: 20050101
  3. ALCOHOL (ALCOHOL) [Concomitant]

REACTIONS (1)
  - CONVULSION [None]
